FAERS Safety Report 21464318 (Version 2)
Quarter: 2022Q4

REPORT INFORMATION
  Report Type: Spontaneous
  Country: US (occurrence: US)
  Receive Date: 20221017
  Receipt Date: 20221020
  Transmission Date: 20230112
  Serious: Yes (Hospitalization, Other)
  Sender: FDA-Public Use
  Company Number: US-MLMSERVICE-20220929-3826352-1

PATIENT
  Age: 66 Year
  Sex: Male

DRUGS (2)
  1. VALACYCLOVIR [Suspect]
     Active Substance: VALACYCLOVIR HYDROCHLORIDE
     Indication: Herpes zoster
     Dosage: 1 GRAM, TID, PRESCRIBED VALACYCLOVIR AT SIX-TIMES THE RECOMMENDED DOSE
     Route: 065
  2. ACETAMINOPHEN\HYDROCODONE [Concomitant]
     Active Substance: ACETAMINOPHEN\HYDROCODONE
     Indication: Herpes zoster
     Dosage: 1 DF (5 MG/325 MG), (QID) EVERY 6 HOURS AS NEEDED
     Route: 065

REACTIONS (2)
  - Neurotoxicity [Recovering/Resolving]
  - Incorrect dose administered [Recovered/Resolved]
